FAERS Safety Report 9644714 (Version 1)
Quarter: 2013Q4

REPORT INFORMATION
  Report Type: Spontaneous
  Country: US (occurrence: None)
  Receive Date: 20131023
  Receipt Date: 20131023
  Transmission Date: 20140711
  Serious: Yes (Hospitalization, Disabling)
  Sender: FDA-Public Use
  Company Number: None

PATIENT
  Age: 56 Year
  Sex: Female
  Weight: 90.72 kg

DRUGS (1)
  1. DOXYCYCLINE HYCLATE 100MG CAP GENERIC/VA FORMULARY [Suspect]
     Indication: INFECTION PROPHYLAXIS
     Route: 048
     Dates: start: 20120830, end: 20120920

REACTIONS (4)
  - Decreased appetite [None]
  - Diarrhoea [None]
  - Asthenia [None]
  - Clostridium difficile infection [None]
